FAERS Safety Report 15675946 (Version 1)
Quarter: 2018Q4

REPORT INFORMATION
  Report Type: Spontaneous
  Country: US (occurrence: US)
  Receive Date: 20181130
  Receipt Date: 20181130
  Transmission Date: 20190205
  Serious: No
  Sender: FDA-Public Use
  Company Number: US-PFIZER INC-2018480560

PATIENT
  Age: 78 Year
  Sex: Female
  Weight: 79.38 kg

DRUGS (1)
  1. PREMARIN [Suspect]
     Active Substance: ESTROGENS, CONJUGATED
     Indication: URINARY TRACT INFECTION
     Dosage: 0.5 G, 2X/WEEK (HALF OF WHICH IS SUPPOSED TO BE INSERTED IN THE VAGINA, AND THE OTHER HALF SHE RUBS)
     Dates: end: 201810

REACTIONS (3)
  - Product use in unapproved indication [Unknown]
  - Vulvovaginal burning sensation [Recovered/Resolved]
  - Incorrect route of product administration [Unknown]

NARRATIVE: CASE EVENT DATE: 201809
